FAERS Safety Report 23861175 (Version 1)
Quarter: 2024Q2

REPORT INFORMATION
  Report Type: Report from Study
  Country: US (occurrence: US)
  Receive Date: 20240516
  Receipt Date: 20240516
  Transmission Date: 20240715
  Serious: Yes (Other)
  Sender: FDA-Public Use
  Company Number: US-ABBVIE-5759624

PATIENT
  Sex: Female

DRUGS (1)
  1. VENCLEXTA [Suspect]
     Active Substance: VENETOCLAX
     Indication: Testis cancer
     Dosage: FORM STRENGTH: 100MILLIGRAM?ON DAYS 1 TO 7 OF A 28 DAY CYCLE
     Route: 048

REACTIONS (2)
  - Staphylococcal skin infection [Unknown]
  - Off label use [Unknown]
